FAERS Safety Report 9128706 (Version 6)
Quarter: 2013Q2

REPORT INFORMATION
  Report Type: Report from Study
  Country: KR (occurrence: KR)
  Receive Date: 20130228
  Receipt Date: 20130617
  Transmission Date: 20140414
  Serious: Yes (Hospitalization)
  Sender: FDA-Public Use
  Company Number: KR-AMGEN-KORCT2013013769

PATIENT
  Age: 61 Year
  Sex: Male
  Weight: 68.8 kg

DRUGS (15)
  1. DENOSUMAB [Suspect]
     Indication: PLASMA CELL MYELOMA
     Dosage: 120 MG, UNK
     Dates: start: 20130122
  2. DEXAMETHASONE [Concomitant]
     Dosage: UNK
     Route: 042
     Dates: start: 20130102, end: 20130309
  3. VINCRISTINE [Concomitant]
     Dosage: 0.4 MG, UNK
     Route: 042
     Dates: start: 20130213, end: 20130309
  4. ADRIAMYCIN [Concomitant]
     Dosage: 16 MG, UNK
     Route: 042
     Dates: start: 20130213, end: 20130309
  5. MAGNESIUM HYDROXIDE [Concomitant]
     Dosage: 500 MG, UNK
     Route: 048
     Dates: start: 20130130, end: 20130226
  6. CIPROFLOXACIN HCL [Concomitant]
     Dosage: 500 MG, UNK
     Route: 048
     Dates: start: 20130122, end: 20130310
  7. DIMETICONE W/PANCREATIN [Concomitant]
     Dosage: UNK
     Route: 048
     Dates: start: 20130216, end: 20130226
  8. BIODIASTASE [Concomitant]
     Dosage: UNK
     Route: 048
     Dates: start: 20130216, end: 20130226
  9. ULTRACET [Concomitant]
     Dosage: UNK
     Route: 048
     Dates: start: 20130130, end: 20130222
  10. METOCLOPRAMIDE HCL [Concomitant]
     Dosage: 10 MG, UNK
     Route: 042
     Dates: start: 20130217, end: 20130303
  11. OXYCODONE HCL [Concomitant]
     Dosage: 40 MG, UNK
     Route: 048
     Dates: start: 20130130, end: 20130314
  12. SUCRALFATE [Concomitant]
     Dosage: 15 ML, UNK
     Route: 048
     Dates: start: 20130122, end: 20130309
  13. FAMOTIDINE [Concomitant]
     Dosage: 20 MG, UNK
     Route: 048
     Dates: start: 20130122, end: 20130226
  14. FLUCONAZOLE [Concomitant]
     Dosage: 100 MG, UNK
     Route: 048
     Dates: start: 20130122, end: 20130313
  15. ITOPRIDE HYDROCHLORIDE [Concomitant]
     Dosage: 50 MG, UNK
     Route: 048
     Dates: start: 20130216, end: 20130226

REACTIONS (1)
  - Febrile neutropenia [Recovered/Resolved]
